FAERS Safety Report 15017094 (Version 10)
Quarter: 2021Q3

REPORT INFORMATION
  Report Type: Report from Study
  Country: US (occurrence: US)
  Receive Date: 20180615
  Receipt Date: 20210811
  Transmission Date: 20211014
  Serious: Yes (Hospitalization, Other)
  Sender: FDA-Public Use
  Company Number: US-SA-2018SA154766

PATIENT
  Age: 48 Year
  Sex: Female

DRUGS (2)
  1. ALEMTUZUMAB [Suspect]
     Active Substance: ALEMTUZUMAB
     Indication: MULTIPLE SCLEROSIS
     Dosage: 12 MG, QD
     Route: 041
     Dates: start: 20170718, end: 20170721
  2. ALEMTUZUMAB [Suspect]
     Active Substance: ALEMTUZUMAB
     Dosage: 12 MG, QD
     Route: 041
     Dates: start: 20160328, end: 20160401

REACTIONS (17)
  - Memory impairment [Unknown]
  - Thyroid disorder [Not Recovered/Not Resolved]
  - Asthma [Unknown]
  - Confusional state [Not Recovered/Not Resolved]
  - Gastrooesophageal reflux disease [Not Recovered/Not Resolved]
  - Asthenia [Unknown]
  - Basedow^s disease [Not Recovered/Not Resolved]
  - Adverse drug reaction [Unknown]
  - Gait disturbance [Not Recovered/Not Resolved]
  - Heat exhaustion [Not Recovered/Not Resolved]
  - Autoimmune disorder [Unknown]
  - Fatigue [Not Recovered/Not Resolved]
  - Thyroid function test abnormal [Not Recovered/Not Resolved]
  - Urinary tract infection [Unknown]
  - Pulmonary embolism [Recovered/Resolved]
  - Adverse event [Unknown]
  - Dehydration [Unknown]

NARRATIVE: CASE EVENT DATE: 201805
